FAERS Safety Report 25407092 (Version 4)
Quarter: 2025Q4

REPORT INFORMATION
  Report Type: Report from Study
  Country: US (occurrence: US)
  Receive Date: 20250606
  Receipt Date: 20251031
  Transmission Date: 20260117
  Serious: No
  Sender: JOHNSON AND JOHNSON
  Company Number: US-JNJFOC-20250527105

PATIENT
  Age: 37 Year
  Sex: Female

DRUGS (1)
  1. TREMFYA [Suspect]
     Active Substance: GUSELKUMAB
     Indication: Colitis ulcerative
     Dosage: STRENGTH: 200.00 MG / 2.00 ML
     Dates: start: 20250521

REACTIONS (7)
  - Device deployment issue [Unknown]
  - Product dose omission issue [Unknown]
  - Menstruation irregular [Unknown]
  - Inappropriate schedule of product administration [Unknown]
  - Contusion [Unknown]
  - Haemorrhage [Unknown]
  - Adverse event [Unknown]

NARRATIVE: CASE EVENT DATE: 20250521
